FAERS Safety Report 21534109 (Version 1)
Quarter: 2022Q4

REPORT INFORMATION
  Report Type: Spontaneous
  Country: US (occurrence: US)
  Receive Date: 20221101
  Receipt Date: 20221101
  Transmission Date: 20230113
  Serious: No
  Sender: FDA-Public Use
  Company Number: US-PARATEK PHARMACEUTICALS, INC.-2021PTK00191

PATIENT
  Age: 72 Year
  Sex: Female

DRUGS (11)
  1. NUZYRA [Suspect]
     Active Substance: OMADACYCLINE
     Indication: Mycobacterium avium complex infection
     Dosage: 450 MG, 1X/DAY
     Route: 048
     Dates: start: 20211001, end: 20211002
  2. NUZYRA [Suspect]
     Active Substance: OMADACYCLINE
     Indication: Mycobacterium abscessus infection
     Dosage: 300 MG, 1X/DAY
     Route: 048
     Dates: start: 20211003, end: 20211023
  3. NUZYRA [Suspect]
     Active Substance: OMADACYCLINE
     Indication: Pneumonia bacterial
     Dosage: 300 MG, 1X/DAY
     Dates: start: 20211106, end: 20211117
  4. NUZYRA [Suspect]
     Active Substance: OMADACYCLINE
     Dosage: 300 MG, 1X/DAY
     Dates: start: 20220119
  5. AZITHROMYCIN [Concomitant]
     Active Substance: AZITHROMYCIN
  6. ETHAMBUTOL [Concomitant]
     Active Substance: ETHAMBUTOL HYDROCHLORIDE
  7. CLOFAZIMINE [Concomitant]
     Active Substance: CLOFAZIMINE
  8. AMIKACIN [Concomitant]
     Active Substance: AMIKACIN
     Route: 042
  9. CRESTOR [Concomitant]
     Active Substance: ROSUVASTATIN CALCIUM
  10. LISINOPRIL [Concomitant]
     Active Substance: LISINOPRIL
  11. UNSPECIFIED MULTIVITAMINS [Concomitant]

REACTIONS (5)
  - Liver function test abnormal [Unknown]
  - Abdominal pain upper [Not Recovered/Not Resolved]
  - Vomiting [Not Recovered/Not Resolved]
  - Off label use [Not Recovered/Not Resolved]
  - Headache [Unknown]

NARRATIVE: CASE EVENT DATE: 20211001
